FAERS Safety Report 8437444-7 (Version None)
Quarter: 2012Q2

REPORT INFORMATION
  Report Type: 
  Country: None (occurrence: None)
  Receive Date: 20120614
  Receipt Date: 20120321
  Transmission Date: 20120825
  Serious: No
  Sender: FDA-Public Use
  Company Number: US-AMGEN-USASP2012018163

PATIENT
  Age: 66 Year
  Sex: Male

DRUGS (3)
  1. PROLIA [Suspect]
     Indication: OSTEOPOROSIS
     Dosage: 60 MG, Q6MO
     Dates: start: 20120116
  2. RAPAFLO [Concomitant]
     Indication: UNEVALUABLE EVENT
  3. TESTOSTERONE [Concomitant]

REACTIONS (1)
  - ALOPECIA [None]
